FAERS Safety Report 7968704-1 (Version None)
Quarter: 2011Q4

REPORT INFORMATION
  Report Type: 
  Country: None (occurrence: None)
  Receive Date: 20111209
  Receipt Date: 20111208
  Transmission Date: 20120403
  Serious: Yes (Other)
  Sender: FDA-Public Use
  Company Number: GB-JNJFOC-20111203965

PATIENT
  Age: 53 Year
  Sex: Female

DRUGS (3)
  1. NICOTINE [Suspect]
     Route: 062
  2. NICORETTE [Suspect]
     Indication: PRODUCT USED FOR UNKNOWN INDICATION
     Route: 048
  3. NICOTINE [Suspect]
     Indication: PRODUCT USED FOR UNKNOWN INDICATION
     Dosage: ^HIGHER STRENGTH^
     Route: 062

REACTIONS (2)
  - PRODUCT QUALITY ISSUE [None]
  - ANAPHYLACTIC SHOCK [None]
